FAERS Safety Report 5632941-1 (Version None)
Quarter: 2008Q1

REPORT INFORMATION
  Report Type: 
  Country: None (occurrence: None)
  Receive Date: 20080221
  Receipt Date: 20080206
  Transmission Date: 20080703
  Serious: Yes (Other)
  Sender: FDA-Public Use
  Company Number: PHFR2008GB00622

PATIENT
  Age: 57 Year
  Sex: Male

DRUGS (1)
  1. DIOVAN [Suspect]
     Indication: RENAL DISORDER
     Dosage: 160 MG, QD

REACTIONS (6)
  - ANEURYSM [None]
  - MIGRAINE [None]
  - NEOVASCULARISATION [None]
  - VISUAL ACUITY REDUCED [None]
  - VISUAL DISTURBANCE [None]
  - VITREOUS FLOATERS [None]
